FAERS Safety Report 12591590 (Version 1)
Quarter: 2016Q3

REPORT INFORMATION
  Report Type: Spontaneous
  Country: US (occurrence: None)
  Receive Date: 20160725
  Receipt Date: 20160725
  Transmission Date: 20161109
  Serious: No
  Sender: FDA-Public Use
  Company Number: None

PATIENT
  Age: 31 Year
  Sex: Female
  Weight: 95.26 kg

DRUGS (3)
  1. LIBRAX [Concomitant]
     Active Substance: CHLORDIAZEPOXIDE HYDROCHLORIDE\CLIDINIUM BROMIDE
  2. ALOSETRON HYDROCHLORIDE. [Suspect]
     Active Substance: ALOSETRON HYDROCHLORIDE
     Indication: IRRITABLE BOWEL SYNDROME
     Dosage: 30 TABLET(S) TWICE A DAY TAKEN BY MOUTH
     Route: 048
     Dates: start: 20160714, end: 20160720
  3. ELIMRON [Concomitant]

REACTIONS (7)
  - Emotional disorder [None]
  - Crying [None]
  - Psychotic disorder [None]
  - Depression [None]
  - Anxiety [None]
  - Stress [None]
  - Serotonin syndrome [None]

NARRATIVE: CASE EVENT DATE: 20160720
